FAERS Safety Report 9223262 (Version 1)
Quarter: 2013Q2

REPORT INFORMATION
  Report Type: Spontaneous
  Country: CN (occurrence: CN)
  Receive Date: 20130410
  Receipt Date: 20130410
  Transmission Date: 20140414
  Serious: Yes (Other)
  Sender: FDA-Public Use
  Company Number: CN-GENZYME-CERZ-1002790

PATIENT
  Age: 45 Year
  Sex: Female
  Weight: 70 kg

DRUGS (5)
  1. CEREZYME [Suspect]
     Indication: GAUCHER^S DISEASE
     Dosage: UNK
     Route: 042
     Dates: start: 200909
  2. CEREZYME [Suspect]
     Dosage: 17.1 U/KG (1200 U, 3 VIALS)
     Route: 042
     Dates: start: 20121028
  3. CEREZYME [Suspect]
     Dosage: 11.4 U/KG, UNK (800 U, 2 VIALS)
     Route: 042
     Dates: end: 20130115
  4. CEPHALOSPORIN C [Concomitant]
     Indication: PRODUCT USED FOR UNKNOWN INDICATION
     Dosage: UNK
     Route: 065
     Dates: start: 201301
  5. ROXITHROMYCIN [Concomitant]
     Indication: PRODUCT USED FOR UNKNOWN INDICATION
     Dosage: UNK
     Route: 065
     Dates: start: 201301

REACTIONS (3)
  - Pathological fracture [Not Recovered/Not Resolved]
  - Pain in extremity [Not Recovered/Not Resolved]
  - Gingival bleeding [Not Recovered/Not Resolved]
